FAERS Safety Report 12372431 (Version 1)
Quarter: 2016Q2

REPORT INFORMATION
  Report Type: Spontaneous
  Country: FR (occurrence: FR)
  Receive Date: 20160516
  Receipt Date: 20160516
  Transmission Date: 20160815
  Serious: Yes (Hospitalization)
  Sender: FDA-Public Use
  Company Number: FR-SA-2016SA093709

PATIENT
  Age: 76 Year
  Sex: Female

DRUGS (11)
  1. LAMALINE [Suspect]
     Active Substance: ACETAMINOPHEN\CAFFEINE\OPIUM
     Indication: GOUT
     Route: 048
     Dates: start: 20140630, end: 20140709
  2. APROVEL [Suspect]
     Active Substance: IRBESARTAN
     Indication: HYPERTENSION
     Route: 048
     Dates: end: 20140709
  3. COLCHICINE. [Suspect]
     Active Substance: COLCHICINE
     Indication: GOUT
     Route: 048
     Dates: start: 20140630, end: 20140709
  4. XELODA [Concomitant]
     Active Substance: CAPECITABINE
  5. TEMERIT [Suspect]
     Active Substance: NEBIVOLOL
     Indication: HYPERTENSION
     Dosage: QUADRISECTED TABLET
     Route: 048
     Dates: end: 20140709
  6. LEVOTHYROX [Concomitant]
     Active Substance: LEVOTHYROXINE
  7. LASILIX [Suspect]
     Active Substance: FUROSEMIDE
     Indication: HYPERTENSION
     Route: 048
     Dates: end: 20140709
  8. PREVISCAN [Concomitant]
     Active Substance: FLUINDIONE
  9. GLUCOR [Concomitant]
     Active Substance: ACARBOSE
  10. FLECTOR [Suspect]
     Active Substance: DICLOFENAC EPOLAMINE
     Indication: GOUT
     Route: 048
     Dates: start: 20140630, end: 20140709
  11. DIFFU K [Concomitant]
     Active Substance: POTASSIUM CHLORIDE

REACTIONS (5)
  - Acute kidney injury [Recovered/Resolved]
  - Diarrhoea [Recovered/Resolved]
  - Dehydration [Recovered/Resolved]
  - Vomiting [Recovered/Resolved]
  - Hypotension [Recovered/Resolved]

NARRATIVE: CASE EVENT DATE: 20140709
